FAERS Safety Report 9788279 (Version 2)
Quarter: 2014Q2

REPORT INFORMATION
  Report Type: Report from Study
  Country: JP (occurrence: JP)
  Receive Date: 20131230
  Receipt Date: 20140410
  Transmission Date: 20141212
  Serious: Yes (Death, Life-Threatening)
  Sender: FDA-Public Use
  Company Number: JP-AMGEN-JPNCT2013090955

PATIENT
  Age: 77 Year
  Sex: Male

DRUGS (11)
  1. DARBEPOETIN ALFA [Suspect]
     Indication: NEPHROGENIC ANAEMIA
     Dosage: 20 MUG, QD
     Route: 058
     Dates: start: 20111206, end: 20130424
  2. OLMETEC [Concomitant]
     Dosage: UNK
     Route: 048
  3. PLETAAL [Concomitant]
     Dosage: UNK
     Route: 048
  4. ACECOL                             /01277402/ [Concomitant]
     Dosage: UNK
     Route: 048
  5. AMLODIPINE [Concomitant]
     Dosage: UNK
     Route: 048
  6. ALLOPURINOL [Concomitant]
     Dosage: UNK
     Route: 048
  7. LANSOPRAZOLE [Concomitant]
     Dosage: UNK
     Route: 048
  8. KREMEZIN [Concomitant]
     Dosage: UNK
     Route: 048
  9. SELBEX [Concomitant]
     Dosage: UNK
     Route: 048
  10. TAKEPRON [Concomitant]
     Dosage: UNK
     Route: 048
  11. ZETIA [Concomitant]
     Dosage: UNK
     Route: 048

REACTIONS (2)
  - Cardiac failure congestive [Fatal]
  - Colon cancer [Not Recovered/Not Resolved]
